FAERS Safety Report 16155216 (Version 1)
Quarter: 2019Q2

REPORT INFORMATION
  Report Type: Spontaneous
  Country: US (occurrence: US)
  Receive Date: 20190403
  Receipt Date: 20190403
  Transmission Date: 20190711
  Serious: Yes (Hospitalization)
  Sender: FDA-Public Use
  Company Number: US-INCYTE CORPORATION-2019IN003194

PATIENT

DRUGS (3)
  1. JAKAFI [Suspect]
     Active Substance: RUXOLITINIB
     Indication: MYELOFIBROSIS
     Dosage: 20 MG, BID
     Route: 065
  2. DECITABINE. [Suspect]
     Active Substance: DECITABINE
     Indication: MYELOFIBROSIS
     Dosage: 20 MG/M2, QD
     Route: 065
  3. JAKAFI [Suspect]
     Active Substance: RUXOLITINIB
     Dosage: 20 MG, QD
     Route: 065

REACTIONS (4)
  - Acute febrile neutrophilic dermatosis [Recovered/Resolved]
  - Erythema [Recovered/Resolved]
  - Febrile neutropenia [Recovered/Resolved]
  - Skin plaque [Recovered/Resolved]
